FAERS Safety Report 8122119-4 (Version None)
Quarter: 2012Q1

REPORT INFORMATION
  Report Type: 
  Country: None (occurrence: None)
  Receive Date: 20120208
  Receipt Date: 20120206
  Transmission Date: 20120608
  Serious: Yes (Other)
  Sender: FDA-Public Use
  Company Number: US-BAYER-2012-012270

PATIENT
  Sex: Female

DRUGS (7)
  1. ZOCOR [Concomitant]
     Dosage: 10 MG, UNK
  2. CARBAMAZEPINE [Concomitant]
     Dosage: 100 MG, UNK
  3. MULTI-VITAMIN [Concomitant]
  4. ALCOWIPES [Suspect]
  5. VITAMIN D [Concomitant]
     Dosage: 1000 U, UNK
  6. BETASERON [Suspect]
     Dosage: 0.25 MG, QOD
     Route: 058
  7. LEVOTHYROXINE SODIUM [Concomitant]
     Dosage: 25 ?G, UNK

REACTIONS (2)
  - INJECTION SITE SCAR [None]
  - INJECTION SITE INFECTION [None]
